FAERS Safety Report 9523374 (Version 2)
Quarter: 2013Q3

REPORT INFORMATION
  Report Type: Spontaneous
  Country: US (occurrence: US)
  Receive Date: 20130913
  Receipt Date: 20130916
  Transmission Date: 20140515
  Serious: No
  Sender: FDA-Public Use
  Company Number: US-009507513-1309USA000875

PATIENT
  Age: 50 Year
  Sex: Male

DRUGS (1)
  1. PROVENTIL [Suspect]
     Dosage: 2 PUFFS EVERY 4-6 HOURS OR AS NEEDED

REACTIONS (4)
  - Drug dose omission [Unknown]
  - Product container issue [Unknown]
  - Product dosage form issue [Unknown]
  - No adverse event [Unknown]
